FAERS Safety Report 6222843-4 (Version None)
Quarter: 2009Q2

REPORT INFORMATION
  Report Type: 
  Country: None (occurrence: None)
  Receive Date: 20090611
  Receipt Date: 20090605
  Transmission Date: 20091009
  Serious: Yes (Hospitalization)
  Sender: FDA-Public Use
  Company Number: B0575906A

PATIENT
  Sex: Female
  Weight: 49 kg

DRUGS (9)
  1. VALTREX [Suspect]
     Indication: HERPES ZOSTER
     Dosage: 500MG THREE TIMES PER DAY
     Route: 048
     Dates: start: 20090520, end: 20090521
  2. FENAZOL [Concomitant]
     Indication: HERPES ZOSTER
     Route: 061
     Dates: start: 20090520
  3. NORVASC [Concomitant]
     Indication: HYPERTENSION
     Dosage: 10MG PER DAY
     Route: 048
  4. MICARDIS [Concomitant]
     Indication: HYPERTENSION
     Dosage: 40MG PER DAY
     Route: 048
  5. SODIUM BICARBONATE [Concomitant]
     Indication: METABOLIC ACIDOSIS
     Dosage: 1.5G PER DAY
     Route: 048
  6. MYSLEE [Concomitant]
     Indication: INSOMNIA
     Dosage: 5MG PER DAY
     Route: 048
  7. POLARAMINE [Concomitant]
     Dosage: 2MG PER DAY
     Route: 048
  8. TANKARU [Concomitant]
     Dosage: 2000MG PER DAY
     Route: 048
  9. CHINESE MEDICINE [Concomitant]
     Dosage: 5G PER DAY
     Route: 048
     Dates: start: 20090513

REACTIONS (7)
  - ANOREXIA [None]
  - ASTHENIA [None]
  - DISORIENTATION [None]
  - DIZZINESS [None]
  - DYSARTHRIA [None]
  - GAIT DISTURBANCE [None]
  - VOMITING [None]
